FAERS Safety Report 15344447 (Version 2)
Quarter: 2018Q4

REPORT INFORMATION
  Report Type: Spontaneous
  Country: US (occurrence: US)
  Receive Date: 20180903
  Receipt Date: 20181217
  Transmission Date: 20190204
  Serious: Yes (Other)
  Sender: FDA-Public Use
  Company Number: US-SA-2018SA242650

PATIENT
  Age: 47 Year
  Sex: Female
  Weight: 68 kg

DRUGS (3)
  1. PARAPLATIN [Concomitant]
     Active Substance: CARBOPLATIN
     Indication: CHEMOTHERAPY
     Dosage: UNK UNK, UNK
  2. DOCETAXEL. [Suspect]
     Active Substance: DOCETAXEL
     Dosage: 140 MG, Q3W
     Route: 042
     Dates: start: 20121011, end: 20121011
  3. DOCETAXEL. [Suspect]
     Active Substance: DOCETAXEL
     Indication: BREAST CANCER FEMALE
     Dosage: 140 MG, Q3W
     Route: 042
     Dates: start: 20120531, end: 20120531

REACTIONS (2)
  - Alopecia [Recovering/Resolving]
  - Psychological trauma [Unknown]

NARRATIVE: CASE EVENT DATE: 2012
